FAERS Safety Report 4270008-8 (Version None)
Quarter: 2004Q1

REPORT INFORMATION
  Report Type: 
  Country: None (occurrence: None)
  Receive Date: 20040113
  Receipt Date: 20040113
  Transmission Date: 20041129
  Serious: Yes (Hospitalization)
  Sender: FDA-Public Use
  Company Number: None

PATIENT
  Age: 59 Year
  Sex: Male
  Weight: 77.1 kg

DRUGS (1)
  1. AMIFOSTINE [Suspect]
     Dosage: 500 MG X 1 DIVID SUBCUTAN
     Route: 058
     Dates: start: 20030923

REACTIONS (1)
  - RASH [None]
